FAERS Safety Report 8351933-5 (Version None)
Quarter: 2012Q2

REPORT INFORMATION
  Report Type: 
  Country: None (occurrence: None)
  Receive Date: 20120510
  Receipt Date: 20120510
  Transmission Date: 20120825
  Serious: Yes (Hospitalization)
  Sender: FDA-Public Use
  Company Number: None

PATIENT
  Sex: Female
  Weight: 101.4 kg

DRUGS (5)
  1. VINCRISTINE SULFATE [Suspect]
     Dosage: 1.5 MG
  2. ALLOPURINOL [Suspect]
     Dosage: 300 MG
  3. DAUNORUBICIN HYDROCHLORIDE [Suspect]
     Dosage: 25 MG
  4. PEG-L ASPARAGINASE (K-H) [Suspect]
     Dosage: 2500 IU
  5. METHOTREXATE [Suspect]
     Dosage: 15 MG

REACTIONS (1)
  - BLOOD TRIGLYCERIDES DECREASED [None]
